FAERS Safety Report 17941841 (Version 4)
Quarter: 2021Q4

REPORT INFORMATION
  Report Type: Spontaneous
  Country: US (occurrence: US)
  Receive Date: 20200625
  Receipt Date: 20211117
  Transmission Date: 20220304
  Serious: No
  Sender: FDA-Public Use
  Company Number: US-SA-2020SA159887

PATIENT
  Age: 50 Year
  Sex: Female

DRUGS (1)
  1. DUPIXENT [Suspect]
     Active Substance: DUPILUMAB
     Indication: Nasal polyps
     Dosage: 300 MG, QOW
     Route: 058
     Dates: start: 20191114

REACTIONS (11)
  - Eye infection [Unknown]
  - Dry eye [Unknown]
  - Keratitis [Unknown]
  - Folliculitis [Recovered/Resolved]
  - Swelling [Unknown]
  - Pain [Unknown]
  - Pyrexia [Unknown]
  - Inner ear disorder [Unknown]
  - Mental status changes [Unknown]
  - General physical condition abnormal [Unknown]
  - Vertigo [Unknown]

NARRATIVE: CASE EVENT DATE: 20200101
